FAERS Safety Report 4646768-0 (Version None)
Quarter: 2005Q2

REPORT INFORMATION
  Report Type: 
  Country: None (occurrence: None)
  Receive Date: 20050425
  Receipt Date: 20050425
  Transmission Date: 20051028
  Serious: Yes (Life-Threatening)
  Sender: FDA-Public Use
  Company Number: None

PATIENT
  Age: 86 Year
  Sex: Female

DRUGS (9)
  1. GENTAMICIN SULFATE [Suspect]
     Indication: PNEUMONIA
     Dosage: 80 MG   Q12H   INTRAVENOU
     Route: 042
     Dates: start: 20050226, end: 20050302
  2. LACTULOSE [Concomitant]
  3. FUROSEMIDE [Concomitant]
  4. LEVOTHYROXINE SODIUM [Concomitant]
  5. CALCIUM CARBONATE [Concomitant]
  6. ENALAPRILAT [Concomitant]
  7. LEVALBUTEROL [Concomitant]
  8. LEVOFLOXACIN [Concomitant]
  9. LANSOPRAZOLE [Concomitant]

REACTIONS (1)
  - RENAL FAILURE ACUTE [None]
